FAERS Safety Report 5830817-8 (Version None)
Quarter: 2008Q3

REPORT INFORMATION
  Report Type: 
  Country: None (occurrence: None)
  Receive Date: 20080801
  Receipt Date: 20071212
  Transmission Date: 20090109
  Serious: No
  Sender: FDA-Public Use
  Company Number: US-BRISTOL-MYERS SQUIBB COMPANY-14012645

PATIENT
  Age: 28 Year
  Sex: Male
  Weight: 82 kg

DRUGS (4)
  1. COUMADIN [Suspect]
     Indication: DEEP VEIN THROMBOSIS
     Route: 048
  2. COUMADIN [Suspect]
     Indication: PULMONARY EMBOLISM
     Route: 048
  3. COUMADIN [Suspect]
     Indication: THROMBOSIS
     Route: 048
  4. CELEXA [Concomitant]

REACTIONS (2)
  - BACK PAIN [None]
  - BONE PAIN [None]
